FAERS Safety Report 18100865 (Version 16)
Quarter: 2022Q1

REPORT INFORMATION
  Report Type: Spontaneous
  Country: GB (occurrence: GB)
  Receive Date: 20200801
  Receipt Date: 20220327
  Transmission Date: 20220423
  Serious: Yes (Hospitalization, Disabling, Other)
  Sender: FDA-Public Use
  Company Number: None

PATIENT
  Age: 81 Year
  Sex: Female

DRUGS (6)
  1. LEFLUNOMIDE [Suspect]
     Active Substance: LEFLUNOMIDE
     Indication: Product used for unknown indication
     Dosage: UNK
     Route: 065
  2. METHOTREXATE [Suspect]
     Active Substance: METHOTREXATE
     Indication: Product used for unknown indication
     Dosage: UNK
     Route: 065
  3. ETANERCEPT [Suspect]
     Active Substance: ETANERCEPT
     Indication: Rheumatoid arthritis
     Dosage: 50 MG, WEEKLY
     Route: 058
     Dates: start: 20190925
  4. METHOTREXATE SODIUM [Suspect]
     Active Substance: METHOTREXATE SODIUM
     Indication: Product used for unknown indication
     Dosage: UNKNOWN
     Route: 065
  5. FOLIC ACID [Concomitant]
     Active Substance: FOLIC ACID
     Indication: Product used for unknown indication
     Dosage: UNK DF
     Route: 065
  6. ACETAMINOPHEN [Concomitant]
     Active Substance: ACETAMINOPHEN
     Indication: Product used for unknown indication
     Dosage: 1 DF, PRN

REACTIONS (40)
  - Bedridden [Not Recovered/Not Resolved]
  - Coma [Unknown]
  - Mental disorder [Unknown]
  - Loss of personal independence in daily activities [Not Recovered/Not Resolved]
  - Abdominal distension [Recovering/Resolving]
  - Arthralgia [Not Recovered/Not Resolved]
  - General physical health deterioration [Unknown]
  - Frustration tolerance decreased [Unknown]
  - Bursitis [Not Recovered/Not Resolved]
  - Back pain [Not Recovered/Not Resolved]
  - Cataract [Unknown]
  - Balance disorder [Not Recovered/Not Resolved]
  - Skin ulcer [Not Recovered/Not Resolved]
  - Renal cyst [Not Recovered/Not Resolved]
  - Sleep disorder [Unknown]
  - Peripheral swelling [Unknown]
  - Mobility decreased [Recovering/Resolving]
  - Weight increased [Unknown]
  - Hypersomnia [Unknown]
  - Stress [Unknown]
  - Pain [Unknown]
  - Somnolence [Unknown]
  - Psychiatric symptom [Unknown]
  - Knee arthroplasty [Unknown]
  - Psychiatric symptom [Unknown]
  - Fall [Unknown]
  - Hip arthroplasty [Unknown]
  - Localised infection [Unknown]
  - Anaemia [Unknown]
  - Arthropathy [Unknown]
  - Weight decreased [Unknown]
  - Eczema [Unknown]
  - Fatigue [Not Recovered/Not Resolved]
  - Malaise [Not Recovered/Not Resolved]
  - Alopecia [Unknown]
  - Cellulitis [Not Recovered/Not Resolved]
  - Urinary tract infection [Not Recovered/Not Resolved]
  - Rheumatoid arthritis [Unknown]
  - Decreased appetite [Unknown]
  - Drug ineffective [Unknown]
